FAERS Safety Report 9485814 (Version 2)
Quarter: 2014Q1

REPORT INFORMATION
  Report Type: Spontaneous
  Country: JP (occurrence: None)
  Receive Date: 20130816
  Receipt Date: 20140310
  Transmission Date: 20141002
  Serious: Yes (Hospitalization)
  Sender: FDA-Public Use
  Company Number: AE-SPE-2013-014

PATIENT
  Age: 42 Year
  Sex: Female

DRUGS (6)
  1. MEIACT MS [Suspect]
     Indication: NASOPHARYNGITIS
     Route: 048
     Dates: start: 20130516, end: 20130520
  2. PL-GRANULES [Suspect]
     Indication: NASOPHARYNGITIS
     Route: 048
     Dates: start: 20130516, end: 20130520
  3. LOXONIN [Suspect]
     Indication: NASOPHARYNGITIS
     Dosage: PRN
     Route: 048
     Dates: start: 20130516, end: 20130520
  4. PERIZELIN (DOMPERIDONE) [Suspect]
     Indication: NASOPHARYNGITIS
     Route: 048
     Dates: start: 20130516, end: 20130520
  5. L-CARBOCISTEINE [Concomitant]
  6. DIHYDROCODEINE PHOSPHATE [Concomitant]

REACTIONS (9)
  - Liver disorder [None]
  - Asthenia [None]
  - Malaise [None]
  - Pyrexia [None]
  - Hepatic function abnormal [None]
  - Aspartate aminotransferase increased [None]
  - Alanine aminotransferase increased [None]
  - No therapeutic response [None]
  - Lymphocyte stimulation test positive [None]
